FAERS Safety Report 25576376 (Version 2)
Quarter: 2025Q3

REPORT INFORMATION
  Report Type: Spontaneous
  Country: EU (occurrence: EU)
  Receive Date: 20250718
  Receipt Date: 20250730
  Transmission Date: 20251021
  Serious: Yes (Congenital Anomaly, Other)
  Sender: MYLAN
  Company Number: EU-MYLANLABS-2025M1058371

PATIENT

DRUGS (2)
  1. ACETAMINOPHEN [Suspect]
     Active Substance: ACETAMINOPHEN
     Indication: Back pain
  2. CYCLOBENZAPRINE [Suspect]
     Active Substance: CYCLOBENZAPRINE
     Indication: Product used for unknown indication

REACTIONS (5)
  - Ductus arteriosus stenosis foetal [Recovered/Resolved]
  - Neonatal cardiac failure [Recovered/Resolved]
  - Pulmonary arterial hypertension [Recovered/Resolved]
  - Embryo-foetal toxicity [Recovered/Resolved]
  - Foetal exposure during pregnancy [Recovered/Resolved]
